FAERS Safety Report 10416936 (Version 2)
Quarter: 2014Q4

REPORT INFORMATION
  Report Type: Spontaneous
  Country: US (occurrence: None)
  Receive Date: 20140826
  Receipt Date: 20141202
  Transmission Date: 20150528
  Serious: Yes (Hospitalization)
  Sender: FDA-Public Use
  Company Number: 2493650

PATIENT
  Age: 70 Year
  Sex: Female
  Weight: 58.5 kg

DRUGS (24)
  1. CYTARABINE. [Suspect]
     Active Substance: CYTARABINE
     Indication: ACUTE MYELOID LEUKAEMIA
     Dosage: CYCLICAL
     Route: 041
     Dates: start: 20140518, end: 20140525
  2. INVESTIGATIONAL DRUG [Suspect]
     Active Substance: INVESTIGATIONAL PRODUCT
     Indication: ACUTE MYELOID LEUKAEMIA
     Dosage: 100 MG MILLIGRAM(S), 1 DAY
     Route: 048
     Dates: start: 20140515, end: 20140615
  3. DAUNORUBICIN [Suspect]
     Active Substance: DAUNORUBICIN
     Indication: ACUTE MYELOID LEUKAEMIA
     Dosage: 96.6 MG MILLIGRAM(S), CYCLICAL
     Route: 040
     Dates: start: 20140518, end: 20140520
  4. TRIAMCINOLONE [Concomitant]
     Active Substance: TRIAMCINOLONE
  5. ARTIFICIAL TEARS [Concomitant]
     Active Substance: GLYCERIN\HYPROMELLOSES\POLYETHYLENE GLYCOL 400
  6. INSULIN ASPART [Concomitant]
     Active Substance: INSULIN ASPART
  7. VANCOMYCIN [Concomitant]
     Active Substance: VANCOMYCIN
  8. LORAZEPAM. [Concomitant]
     Active Substance: LORAZEPAM
  9. NYSTATIN. [Concomitant]
     Active Substance: NYSTATIN
  10. PIPERACILLIN SODIUM  W/TAZOBACTAM SODIUM) [Concomitant]
  11. POTASSIUM CHLORIDE. [Concomitant]
     Active Substance: POTASSIUM CHLORIDE
  12. VALACYCLOVIR HYDROCHLORIDE. [Concomitant]
     Active Substance: VALACYCLOVIR HYDROCHLORIDE
  13. VORICONAZOLE. [Concomitant]
     Active Substance: VORICONAZOLE
  14. HYDROCORTISONE. [Concomitant]
     Active Substance: HYDROCORTISONE
  15. AMLODIPINE [Concomitant]
     Active Substance: AMLODIPINE BESYLATE
  16. MAGNESIUM SULFATE. [Concomitant]
     Active Substance: MAGNESIUM SULFATE
  17. IOHEXOL [Concomitant]
     Active Substance: IOHEXOL
  18. PANTOPRAZOLE [Concomitant]
     Active Substance: PANTOPRAZOLE SODIUM
  19. ATORVASTATIN [Concomitant]
     Active Substance: ATORVASTATIN
  20. MULTIVITAMINS [Concomitant]
     Active Substance: VITAMINS
  21. FUROSEMIDE. [Concomitant]
     Active Substance: FUROSEMIDE
  22. OMEPRAZOLE. [Concomitant]
     Active Substance: OMEPRAZOLE
  23. CYTARABINE. [Concomitant]
     Active Substance: CYTARABINE
  24. GLIMEPIRIDE. [Concomitant]
     Active Substance: GLIMEPIRIDE

REACTIONS (9)
  - Asthenia [None]
  - Dyspnoea exertional [None]
  - Subdural haemorrhage [None]
  - Hyperglycaemia [None]
  - Decreased appetite [None]
  - Platelet count decreased [None]
  - Blood magnesium decreased [None]
  - Diarrhoea [None]
  - Vomiting [None]

NARRATIVE: CASE EVENT DATE: 20140505
